FAERS Safety Report 4367518-1 (Version None)
Quarter: 2004Q2

REPORT INFORMATION
  Report Type: 
  Country: None (occurrence: None)
  Receive Date: 20040601
  Receipt Date: 20030723
  Transmission Date: 20050107
  Serious: Yes (Hospitalization)
  Sender: FDA-Public Use
  Company Number: ES-ROCHE-343114

PATIENT
  Age: 40 Year
  Sex: Male

DRUGS (6)
  1. PEG-INTERFERON ALFA 2A (RO 25-8310) [Suspect]
     Route: 058
     Dates: start: 20011113, end: 20021015
  2. RIBAVIRIN [Suspect]
     Route: 048
     Dates: start: 20020115, end: 20021015
  3. D4T [Concomitant]
     Dosage: ROUTE- BID
     Dates: start: 20000906
  4. 3TC [Concomitant]
     Dosage: ROUTE- BID
     Dates: start: 20020322
  5. NELFINAVIR [Concomitant]
     Dates: start: 20020503
  6. AMITRIPTYLINE HCL [Concomitant]
     Dosage: ROUTE- BID

REACTIONS (2)
  - LUPUS-LIKE SYNDROME [None]
  - PLEURAL HAEMORRHAGE [None]
